FAERS Safety Report 23055761 (Version 1)
Quarter: 2023Q4

REPORT INFORMATION
  Report Type: Spontaneous
  Country: US (occurrence: None)
  Receive Date: 20231011
  Receipt Date: 20231011
  Transmission Date: 20240110
  Serious: Yes (Other)
  Sender: FDA-Public Use
  Company Number: None

PATIENT
  Age: 19 Year
  Sex: 0
  Weight: 44 kg

DRUGS (3)
  1. INFED [Suspect]
     Active Substance: IRON DEXTRAN
     Indication: Iron deficiency anaemia
     Dosage: OTHER FREQUENCY : ONCE;?
     Route: 042
     Dates: start: 20231006, end: 20231006
  2. Polysaccharide Iron Chewable Tablet 50 mg daily [Concomitant]
  3. Xulane 150 mcg-35 mcg weekly [Concomitant]

REACTIONS (4)
  - Flushing [None]
  - Loss of consciousness [None]
  - Dyspnoea [None]
  - Throat tightness [None]

NARRATIVE: CASE EVENT DATE: 20231006
